FAERS Safety Report 17583448 (Version 1)
Quarter: 2020Q1

REPORT INFORMATION
  Report Type: Other
  Country: GB (occurrence: GB)
  Receive Date: 20200326
  Receipt Date: 20200326
  Transmission Date: 20200409
  Serious: No
  Sender: FDA-Public Use
  Company Number: GB-LUPIN PHARMACEUTICALS INC.-2019-07270

PATIENT
  Age: 37 Year
  Sex: Female
  Weight: 63.5 kg

DRUGS (1)
  1. SERTRALINE [Suspect]
     Active Substance: SERTRALINE HYDROCHLORIDE
     Indication: DEPRESSION
     Dosage: 100 MILLIGRAM
     Route: 048
     Dates: start: 20170201, end: 20180517

REACTIONS (10)
  - Abnormal loss of weight [Recovering/Resolving]
  - Loss of libido [Recovering/Resolving]
  - Psychomotor hyperactivity [Recovering/Resolving]
  - Ear pain [Recovered/Resolved]
  - Malaise [Recovered/Resolved]
  - Night sweats [Recovered/Resolved]
  - Nocturia [Recovered/Resolved]
  - Nightmare [Recovering/Resolving]
  - Muscle twitching [Recovering/Resolving]
  - Emotional poverty [Recovering/Resolving]

NARRATIVE: CASE EVENT DATE: 20170201
